FAERS Safety Report 8224499-8 (Version None)
Quarter: 2012Q1

REPORT INFORMATION
  Report Type: 
  Country: None (occurrence: None)
  Receive Date: 20120319
  Receipt Date: 20120305
  Transmission Date: 20120608
  Serious: Yes (Hospitalization, Other)
  Sender: FDA-Public Use
  Company Number: 2012P1008985

PATIENT
  Age: 17 Year
  Sex: Female
  Weight: 54.4316 kg

DRUGS (2)
  1. UNSPECIFIED ACNE MEDICATION [Concomitant]
  2. SOLODYN [Suspect]
     Indication: ACNE
     Dosage: ;QD;
     Dates: start: 20120213, end: 20120227

REACTIONS (8)
  - ELECTROENCEPHALOGRAM ABNORMAL [None]
  - DRUG INEFFECTIVE [None]
  - ABDOMINAL DISCOMFORT [None]
  - SPEECH DISORDER [None]
  - ABNORMAL BEHAVIOUR [None]
  - CONFUSIONAL STATE [None]
  - EUPHORIC MOOD [None]
  - ENCEPHALITIS [None]
